FAERS Safety Report 5326026-1 (Version None)
Quarter: 2007Q2

REPORT INFORMATION
  Report Type: 
  Country: None (occurrence: None)
  Receive Date: 20070516
  Receipt Date: 20070504
  Transmission Date: 20071010
  Serious: Yes (Hospitalization, Other)
  Sender: FDA-Public Use
  Company Number: HQWYE980504MAY07

PATIENT
  Age: 64 Year
  Sex: Female

DRUGS (2)
  1. INIPOMP [Suspect]
     Indication: DUODENAL ULCER
     Route: 048
     Dates: start: 20070101
  2. SUCRALFATE [Suspect]
     Indication: DUODENAL ULCER
     Route: 048
     Dates: start: 20070309, end: 20070312

REACTIONS (4)
  - DIARRHOEA [None]
  - HYPERGASTRINAEMIA [None]
  - SMALL INTESTINE CARCINOMA [None]
  - VOMITING [None]
